FAERS Safety Report 5256829-3 (Version None)
Quarter: 2007Q1

REPORT INFORMATION
  Report Type: 
  Country: None (occurrence: None)
  Receive Date: 20070306
  Receipt Date: 20070220
  Transmission Date: 20070707
  Serious: Yes (Hospitalization)
  Sender: FDA-Public Use
  Company Number: US-ELI_LILLY_AND_COMPANY-US200702004113

PATIENT
  Age: 37 Year
  Sex: Male

DRUGS (3)
  1. CYMBALTA [Suspect]
     Indication: ANXIETY
     Dosage: 30 MG, 2/D
     Route: 048
     Dates: start: 20050101
  2. LUNESTA [Concomitant]
  3. WELLBUTRIN XL [Concomitant]
     Dosage: 450 MG, DAILY (1/D)

REACTIONS (1)
  - INTESTINAL OBSTRUCTION [None]
